FAERS Safety Report 8171004-0 (Version None)
Quarter: 2012Q1

REPORT INFORMATION
  Report Type: 
  Country: None (occurrence: None)
  Receive Date: 20120113
  Receipt Date: 20110928
  Transmission Date: 20120608
  Serious: No
  Sender: FDA-Public Use
  Company Number: 2011S1000077

PATIENT
  Age: 59 Year
  Sex: Male

DRUGS (17)
  1. YDROCORTISONE [Concomitant]
  2. KRYSTEXXA [Suspect]
     Indication: GOUT
     Dosage: 8 MG;X1;IV
     Route: 042
     Dates: start: 20110901, end: 20110901
  3. KRYSTEXXA [Suspect]
     Indication: GOUT
     Dosage: 8 MG;X1;IV
     Route: 042
     Dates: start: 20110801, end: 20110801
  4. KRYSTEXXA [Suspect]
     Indication: GOUT
     Dosage: 8 MG;X1;IV
     Route: 042
     Dates: start: 20110801, end: 20110801
  5. PREDNISONE TAB [Concomitant]
  6. HYDRLAZINE [Concomitant]
  7. TERAZOSIN HCL [Concomitant]
  8. PROSCAR [Concomitant]
  9. NORVASC [Concomitant]
  10. RENAGEL /01459902/ [Concomitant]
  11. INSULIN [Concomitant]
  12. LIPITOR [Concomitant]
  13. BENADRYL /00945501/ [Concomitant]
  14. ASPIRIN [Concomitant]
  15. ALDACTONE [Concomitant]
  16. PERCOCET [Concomitant]
  17. ULORIC [Concomitant]

REACTIONS (5)
  - GOUT [None]
  - THERAPEUTIC RESPONSE UNEXPECTED [None]
  - HAEMOGLOBIN DECREASED [None]
  - GASTROINTESTINAL HAEMORRHAGE [None]
  - HAEMATOCRIT DECREASED [None]
